FAERS Safety Report 5170530-6 (Version None)
Quarter: 2006Q4

REPORT INFORMATION
  Report Type: 
  Country: None (occurrence: None)
  Receive Date: 20061204
  Receipt Date: 20061124
  Transmission Date: 20070319
  Serious: Yes (Other)
  Sender: FDA-Public Use
  Company Number: 30613

PATIENT
  Age: 20 Year
  Sex: Female

DRUGS (1)
  1. ALDARA [Suspect]
     Indication: ANOGENITAL WARTS
     Dosage: 1 UNSPEC., 3 IN 1 WEEK (S))
     Route: 061
     Dates: start: 20061115, end: 20061124

REACTIONS (6)
  - APPLICATION SITE INFLAMMATION [None]
  - APPLICATION SITE REACTION [None]
  - DYSURIA [None]
  - PAIN [None]
  - URINARY RETENTION [None]
  - VAGINAL LACERATION [None]
